FAERS Safety Report 4946723-7 (Version None)
Quarter: 2006Q1

REPORT INFORMATION
  Report Type: 
  Country: None (occurrence: None)
  Receive Date: 20060317
  Receipt Date: 20050930
  Transmission Date: 20060701
  Serious: Yes (Hospitalization, Disabling)
  Sender: FDA-Public Use
  Company Number: PR-MERCK-0510USA01628

PATIENT
  Age: 33 Year
  Sex: Male
  Weight: 75 kg

DRUGS (2)
  1. VIOXX [Suspect]
     Indication: MUSCULOSKELETAL CHEST PAIN
     Route: 048
     Dates: start: 19991101, end: 20000201
  2. VIOXX [Suspect]
     Indication: INFLAMMATION
     Route: 048
     Dates: start: 19991101, end: 20000201

REACTIONS (12)
  - ANAEMIA [None]
  - ARTERITIS [None]
  - DEEP VEIN THROMBOSIS [None]
  - DEPRESSION [None]
  - GASTROINTESTINAL DISORDER [None]
  - HAEMATURIA [None]
  - HYPERTENSION [None]
  - LYMPHADENOPATHY [None]
  - MALAISE [None]
  - PAIN [None]
  - RENAL FAILURE [None]
  - VASODILATATION [None]
